FAERS Safety Report 21599178 (Version 1)
Quarter: 2022Q4

REPORT INFORMATION
  Report Type: Spontaneous
  Country: BG (occurrence: BG)
  Receive Date: 20221115
  Receipt Date: 20221115
  Transmission Date: 20230113
  Serious: Yes (Hospitalization)
  Sender: FDA-Public Use
  Company Number: BG-009507513-2211BGR002850

PATIENT
  Age: 65 Year
  Sex: Male
  Weight: 95 kg

DRUGS (4)
  1. KEYTRUDA [Suspect]
     Active Substance: PEMBROLIZUMAB
     Indication: Lung squamous cell carcinoma metastatic
     Dosage: 200 MILLIGRAM, Q3W
     Dates: start: 20210720
  2. CARBOPLATIN [Suspect]
     Active Substance: CARBOPLATIN
     Indication: Lung squamous cell carcinoma metastatic
     Dosage: UNK
     Dates: start: 20210720
  3. PACLITAXEL [Suspect]
     Active Substance: PACLITAXEL
     Indication: Lung squamous cell carcinoma metastatic
     Dosage: UNK
     Dates: start: 20210720
  4. ZOLEDRONIC ACID [Suspect]
     Active Substance: ZOLEDRONIC ACID
     Indication: Lung squamous cell carcinoma metastatic
     Dosage: 4 MILLIGRAM, EVERY 28 DAYS
     Dates: start: 20210720

REACTIONS (1)
  - COVID-19 [Recovered/Resolved]
